FAERS Safety Report 14675430 (Version 1)
Quarter: 2018Q1

REPORT INFORMATION
  Report Type: Spontaneous
  Country: AT (occurrence: AT)
  Receive Date: 20180323
  Receipt Date: 20180323
  Transmission Date: 20180509
  Serious: Yes (Other)
  Sender: FDA-Public Use
  Company Number: AT-PFIZER INC-2018116677

PATIENT
  Age: 60 Year
  Sex: Male

DRUGS (14)
  1. GEROLAMIC [Concomitant]
     Dosage: UNK
     Dates: start: 20170622, end: 20170630
  2. EFECTIN ER [Suspect]
     Active Substance: VENLAFAXINE HYDROCHLORIDE
     Dosage: 225 MG, UNK
     Route: 048
     Dates: start: 20170705, end: 20170719
  3. GEROLAMIC [Concomitant]
     Dosage: UNK
     Dates: start: 20170717, end: 20170727
  4. CONVULEX [Concomitant]
     Active Substance: VALPROIC ACID
     Dosage: UNK
  5. ADASUVE [Concomitant]
     Active Substance: LOXAPINE
     Dosage: UNK
  6. GEROLAMIC [Concomitant]
     Dosage: UNK
     Dates: start: 20170710, end: 20170716
  7. EFECTIN ER [Suspect]
     Active Substance: VENLAFAXINE HYDROCHLORIDE
     Dosage: 150 MG, UNK
     Route: 048
     Dates: start: 20170627, end: 20170704
  8. ABILIFY [Suspect]
     Active Substance: ARIPIPRAZOLE
     Dosage: 20 MG, UNK
     Route: 048
     Dates: start: 20170720
  9. GEROLAMIC [Concomitant]
     Dosage: UNK
     Dates: start: 20170701, end: 20170709
  10. ABILIFY [Suspect]
     Active Substance: ARIPIPRAZOLE
     Dosage: 10 MG, UNK
     Route: 048
     Dates: start: 20170620, end: 20170719
  11. GEROLAMIC [Concomitant]
     Dosage: UNK
     Dates: start: 20170728
  12. TEMESTA (LORAZEPAM) [Concomitant]
     Active Substance: LORAZEPAM
     Dosage: UNK
  13. EFECTIN ER [Suspect]
     Active Substance: VENLAFAXINE HYDROCHLORIDE
     Dosage: 75 MG, UNK
     Route: 048
     Dates: start: 20170622, end: 20170626
  14. LITHIUM. [Concomitant]
     Active Substance: LITHIUM
     Dosage: UNK

REACTIONS (8)
  - Mania [Recovered/Resolved]
  - Psychomotor hyperactivity [Unknown]
  - Cognitive disorder [Unknown]
  - Delusion [Unknown]
  - Hypomania [Recovered/Resolved]
  - Impulsive behaviour [Unknown]
  - Flight of ideas [Unknown]
  - Dysphoria [Unknown]

NARRATIVE: CASE EVENT DATE: 20170718
